FAERS Safety Report 9407015 (Version 1)
Quarter: 2013Q3

REPORT INFORMATION
  Report Type: Report from Study
  Country: CA (occurrence: CA)
  Receive Date: 20130718
  Receipt Date: 20130718
  Transmission Date: 20140515
  Serious: Yes (Other)
  Sender: FDA-Public Use
  Company Number: CA-ROCHE-1224446

PATIENT
  Age: 70 Year
  Sex: Male
  Weight: 68 kg

DRUGS (13)
  1. RITUXAN [Suspect]
     Indication: SJOGREN^S SYNDROME
     Route: 042
     Dates: start: 20111024
  2. RITUXAN [Suspect]
     Indication: RHEUMATOID ARTHRITIS
  3. DIPHENHYDRAMINE HCL [Concomitant]
     Indication: PREMEDICATION
     Route: 048
     Dates: start: 20111024
  4. ACETAMINOPHEN [Concomitant]
     Indication: PREMEDICATION
     Route: 048
     Dates: start: 20111024
  5. METHYLPREDNISOLONE [Concomitant]
     Indication: PREMEDICATION
     Route: 042
     Dates: start: 20111024
  6. ARAVA [Concomitant]
  7. PREDNISONE [Concomitant]
  8. CELEBREX [Concomitant]
  9. PLAQUENIL [Concomitant]
  10. FLOMAX [Concomitant]
  11. LOSEC (CANADA) [Concomitant]
  12. BABY ASA [Concomitant]
  13. VITAMIN B12 [Concomitant]
     Route: 065

REACTIONS (3)
  - Rheumatoid arthritis [Not Recovered/Not Resolved]
  - Pancreatic disorder [Unknown]
  - Renal disorder [Unknown]
